FAERS Safety Report 6552560-2 (Version None)
Quarter: 2010Q1

REPORT INFORMATION
  Report Type: 
  Country: None (occurrence: None)
  Receive Date: 20100126
  Receipt Date: 20100121
  Transmission Date: 20100710
  Serious: Yes (Other)
  Sender: FDA-Public Use
  Company Number: BE-ABBOTT-10P-013-0618770-00

PATIENT
  Sex: Female

DRUGS (4)
  1. HUMIRA [Suspect]
     Indication: PSORIATIC ARTHROPATHY
     Dates: start: 20061201
  2. LEDERTREXATE [Concomitant]
     Indication: ARTHRITIS
     Route: 030
  3. FOLIC ACID [Concomitant]
     Indication: ARTHRITIS
  4. CATAFLAM [Concomitant]
     Indication: ARTHRITIS

REACTIONS (1)
  - STRESS FRACTURE [None]
